FAERS Safety Report 25082246 (Version 1)
Quarter: 2025Q1

REPORT INFORMATION
  Report Type: Spontaneous
  Country: US (occurrence: US)
  Receive Date: 20250317
  Receipt Date: 20250317
  Transmission Date: 20250408
  Serious: No
  Sender: ROCHE
  Company Number: US-ROCHE-10000230293

PATIENT
  Age: 61 Year
  Sex: Female

DRUGS (4)
  1. XOLAIR PFS [Suspect]
     Active Substance: OMALIZUMAB
     Indication: Asthma
     Dosage: XOLAIR PFS STRENGTH: 75MG/0.5ML
     Route: 058
  2. XOLAIR PFS [Suspect]
     Active Substance: OMALIZUMAB
  3. PREDNISONE [Concomitant]
     Active Substance: PREDNISONE
  4. OXYGEN [Concomitant]
     Active Substance: OXYGEN

REACTIONS (4)
  - Fatigue [Unknown]
  - Headache [Unknown]
  - Injection site reaction [Unknown]
  - Malaise [Unknown]
